FAERS Safety Report 7754422-1 (Version None)
Quarter: 2011Q3

REPORT INFORMATION
  Report Type: 
  Country: None (occurrence: None)
  Receive Date: 20110915
  Receipt Date: 20110906
  Transmission Date: 20111222
  Serious: Yes (Hospitalization, Other)
  Sender: FDA-Public Use
  Company Number: FR-ELI_LILLY_AND_COMPANY-FR201109001200

PATIENT
  Sex: Male

DRUGS (17)
  1. GEMZAR [Suspect]
     Indication: LUNG SQUAMOUS CELL CARCINOMA STAGE UNSPECIFIED
     Dosage: 2.5 G, UNK
     Route: 042
     Dates: start: 20101019
  2. LASIX [Concomitant]
     Dosage: 60 MG, QD
  3. VITAMIN B1 TAB [Concomitant]
     Dosage: 3 DF, TID
  4. LEVOTHYROXINE SODIUM [Concomitant]
     Dosage: 125 UG, QD
     Route: 048
  5. GEMZAR [Suspect]
     Dosage: 1.8 G, UNK
     Dates: start: 20110111, end: 20110215
  6. GEMZAR [Suspect]
     Dosage: 2 G, UNK
     Dates: start: 20101228
  7. LYRICA [Concomitant]
     Dosage: 150 MG, BID
  8. FRAXODI [Concomitant]
     Indication: ATRIAL FIBRILLATION
     Dosage: 0.6 ML, QD
     Dates: start: 20101013
  9. VITAMIN B6 [Concomitant]
     Dosage: 3 DF, TID
  10. GEMZAR [Suspect]
     Dosage: 2.2 G, UNK
     Dates: start: 20101130
  11. DIGOXIN [Concomitant]
     Dosage: 0.125 MG, QD
  12. NEBIVOLOL HCL [Concomitant]
     Dosage: 0.5 MG, QD
  13. NEXIUM [Concomitant]
     Dosage: 20 MG, QD
     Route: 048
  14. FERROUS FUMARATE [Concomitant]
     Dosage: 1 DF, QD
  15. CALCIUM CARBONATE [Concomitant]
     Dosage: 3 DF, TID
     Route: 048
  16. NEULASTA [Concomitant]
     Dosage: 6 MG, UNK
  17. EPREX [Concomitant]
     Dosage: UNK
     Dates: end: 20110207

REACTIONS (4)
  - THROMBOCYTOPENIA [None]
  - PARAPLEGIA [None]
  - NEUTROPENIA [None]
  - ANAEMIA [None]
